FAERS Safety Report 16444272 (Version 3)
Quarter: 2019Q3

REPORT INFORMATION
  Report Type: Report from Study
  Country: US (occurrence: US)
  Receive Date: 20190618
  Receipt Date: 20190730
  Transmission Date: 20191004
  Serious: No
  Sender: FDA-Public Use
  Company Number: PHEH2019US025617

PATIENT
  Age: 83 Year
  Sex: Female
  Weight: 67.13 kg

DRUGS (2)
  1. TREPROSTINIL. [Suspect]
     Active Substance: TREPROSTINIL
     Dosage: 80 OT (NG/KG/MIN), CONTINUOUS
     Route: 042
  2. TREPROSTINIL. [Suspect]
     Active Substance: TREPROSTINIL
     Indication: PULMONARY ARTERIAL HYPERTENSION
     Dosage: 80 OT (NG/KG/MIN), CONTINUOUS
     Route: 042
     Dates: start: 20190430

REACTIONS (3)
  - Fall [Unknown]
  - Diarrhoea [Unknown]
  - Upper limb fracture [Unknown]

NARRATIVE: CASE EVENT DATE: 20190723
